FAERS Safety Report 20065950 (Version 1)
Quarter: 2021Q4

REPORT INFORMATION
  Report Type: Spontaneous
  Country: US (occurrence: None)
  Receive Date: 20211114
  Receipt Date: 20211114
  Transmission Date: 20220304
  Serious: No
  Sender: FDA-Public Use
  Company Number: 2021A795281

PATIENT
  Weight: 108.9 kg

DRUGS (2)
  1. BYDUREON BCISE [Suspect]
     Active Substance: EXENATIDE
     Indication: Diabetes mellitus
     Route: 058
  2. BYDUREON [Concomitant]
     Active Substance: EXENATIDE
     Indication: Diabetes mellitus
     Route: 058

REACTIONS (3)
  - Impaired gastric emptying [Not Recovered/Not Resolved]
  - Diabetes mellitus inadequate control [Recovering/Resolving]
  - Glycosylated haemoglobin increased [Not Recovered/Not Resolved]
